FAERS Safety Report 5023871-7 (Version None)
Quarter: 2006Q2

REPORT INFORMATION
  Report Type: 
  Country: None (occurrence: None)
  Receive Date: 20060607
  Receipt Date: 20060524
  Transmission Date: 20061013
  Serious: Yes (Hospitalization, Other)
  Sender: FDA-Public Use
  Company Number: 2005064889

PATIENT
  Age: 67 Year
  Sex: Female
  Weight: 54.4316 kg

DRUGS (1)
  1. BEXTRA [Suspect]
     Indication: ARTHRITIS
     Dosage: 20 MG (20 MG, 1 IN 1 D)
     Dates: start: 20031014

REACTIONS (9)
  - ANHEDONIA [None]
  - ANXIETY [None]
  - BLOOD CHOLESTEROL INCREASED [None]
  - CARDIAC VALVE DISEASE [None]
  - CEREBROVASCULAR ACCIDENT [None]
  - EMOTIONAL DISTRESS [None]
  - GASTROOESOPHAGEAL REFLUX DISEASE [None]
  - MENTAL DISORDER [None]
  - PAIN [None]
